FAERS Safety Report 4928470-0 (Version None)
Quarter: 2006Q1

REPORT INFORMATION
  Report Type: 
  Country: None (occurrence: None)
  Receive Date: 20060223
  Receipt Date: 20060213
  Transmission Date: 20060701
  Serious: Yes (Other)
  Sender: FDA-Public Use
  Company Number: B0412841A

PATIENT
  Age: 28 Year
  Sex: Female

DRUGS (2)
  1. LAMICTAL [Suspect]
     Indication: EPILEPSY
  2. CARBAMAZEPINE [Suspect]
     Indication: EPILEPSY

REACTIONS (5)
  - BLOOD ANTIDIURETIC HORMONE INCREASED [None]
  - CEREBRAL DISORDER [None]
  - CEREBRAL ISCHAEMIA [None]
  - PARTIAL SEIZURES WITH SECONDARY GENERALISATION [None]
  - SIMPLE PARTIAL SEIZURES [None]
